FAERS Safety Report 10354540 (Version 2)
Quarter: 2014Q3

REPORT INFORMATION
  Report Type: Spontaneous
  Country: DE (occurrence: DE)
  Receive Date: 20140731
  Receipt Date: 20140819
  Transmission Date: 20150326
  Serious: No
  Sender: FDA-Public Use
  Company Number: DE-SA-2014SA099316

PATIENT
  Sex: Female

DRUGS (3)
  1. ARAVA [Suspect]
     Active Substance: LEFLUNOMIDE
     Indication: EXPOSURE VIA FATHER
     Dates: start: 200805
  2. FOLIC ACID. [Suspect]
     Active Substance: FOLIC ACID
     Indication: EXPOSURE VIA FATHER
     Dates: start: 200702
  3. QUENSYL [Suspect]
     Active Substance: HYDROXYCHLOROQUINE
     Indication: EXPOSURE VIA FATHER
     Dates: start: 200904

REACTIONS (1)
  - Exposure via father [Unknown]
